FAERS Safety Report 4412793-8 (Version None)
Quarter: 2004Q3

REPORT INFORMATION
  Report Type: 
  Country: None (occurrence: None)
  Receive Date: 20040730
  Receipt Date: 20040730
  Transmission Date: 20050211
  Serious: Yes (Other)
  Sender: FDA-Public Use
  Company Number: None

PATIENT
  Age: 20 Year
  Sex: Male

DRUGS (3)
  1. METRONIDAZOLE [Suspect]
     Dosage: 1 TAB 4X DAILY
     Dates: start: 20031106, end: 20031107
  2. MAXIPIME [Concomitant]
  3. ADVAIR [Concomitant]

REACTIONS (7)
  - BACK PAIN [None]
  - DIZZINESS [None]
  - DYSPNOEA [None]
  - FEELING COLD [None]
  - FEELING HOT [None]
  - HYPERHIDROSIS [None]
  - NAUSEA [None]
